FAERS Safety Report 8576044-5 (Version None)
Quarter: 2012Q3

REPORT INFORMATION
  Report Type: 
  Country: None (occurrence: None)
  Receive Date: 20120807
  Receipt Date: 20120326
  Transmission Date: 20120928
  Serious: Yes (Death, Hospitalization, Other)
  Sender: FDA-Public Use
  Company Number: DE-CELGENEUS-062-50794-12053175

PATIENT
  Age: 71 Year
  Sex: Male
  Weight: 66 kg

DRUGS (5)
  1. PLATELETS [Concomitant]
     Indication: ACUTE MYELOID LEUKAEMIA
     Route: 041
     Dates: end: 20110105
  2. VIDAZA [Suspect]
     Indication: ACUTE MYELOID LEUKAEMIA
     Dosage: 75 MILLIGRAM/SQ. METER
     Route: 058
     Dates: start: 20110117, end: 20110302
  3. PLATELETS [Concomitant]
     Route: 041
     Dates: start: 20110118
  4. RED BLOOD CELLS [Concomitant]
     Indication: ACUTE MYELOID LEUKAEMIA
     Route: 041
     Dates: end: 20110105
  5. RED BLOOD CELLS [Concomitant]
     Route: 041
     Dates: start: 20110118

REACTIONS (6)
  - DIVERTICULITIS [None]
  - INFECTION [None]
  - URINARY TRACT INFECTION [None]
  - INJECTION SITE REACTION [None]
  - FEBRILE NEUTROPENIA [None]
  - SEPSIS [None]
